FAERS Safety Report 24667944 (Version 1)
Quarter: 2024Q4

REPORT INFORMATION
  Report Type: Spontaneous
  Country: GB (occurrence: GB)
  Receive Date: 20241127
  Receipt Date: 20241127
  Transmission Date: 20250114
  Serious: Yes (Other)
  Sender: ORGANON
  Company Number: None

PATIENT

DRUGS (1)
  1. FINASTERIDE [Suspect]
     Active Substance: FINASTERIDE
     Dosage: UNK
     Dates: start: 20231209, end: 20240115

REACTIONS (1)
  - Ear inflammation [Not Recovered/Not Resolved]

NARRATIVE: CASE EVENT DATE: 20240201
